FAERS Safety Report 9397490 (Version 1)
Quarter: 2013Q3

REPORT INFORMATION
  Report Type: Spontaneous
  Country: CA (occurrence: CA)
  Receive Date: 20130712
  Receipt Date: 20130712
  Transmission Date: 20140515
  Serious: Yes (Other)
  Sender: FDA-Public Use
  Company Number: CA-BAYER-2013-082275

PATIENT
  Sex: Female

DRUGS (1)
  1. BETASERON [Suspect]
     Indication: RELAPSING-REMITTING MULTIPLE SCLEROSIS
     Dosage: UNK
     Dates: start: 1992

REACTIONS (7)
  - Myocardial infarction [None]
  - Multiple sclerosis relapse [None]
  - Diplopia [None]
  - Ataxia [None]
  - Injection site reaction [None]
  - Pyrexia [None]
  - Fatigue [None]
